FAERS Safety Report 24570946 (Version 2)
Quarter: 2024Q4

REPORT INFORMATION
  Report Type: Spontaneous
  Country: US (occurrence: US)
  Receive Date: 20241101
  Receipt Date: 20241121
  Transmission Date: 20250114
  Serious: No
  Sender: ALMUS
  Company Number: US-ALMIRALL-US-2024-2748

PATIENT
  Age: 71 Year
  Sex: Male
  Weight: 77.11 kg

DRUGS (1)
  1. KLISYRI [Suspect]
     Active Substance: TIRBANIBULIN
     Indication: Product used for unknown indication
     Route: 061
     Dates: start: 20241009, end: 20241014

REACTIONS (2)
  - Application site dryness [Unknown]
  - Application site exfoliation [Unknown]

NARRATIVE: CASE EVENT DATE: 20241015
